FAERS Safety Report 8778051 (Version 2)
Quarter: 2012Q4

REPORT INFORMATION
  Report Type: 
  Country: US (occurrence: US)
  Receive Date: 20120912
  Receipt Date: 20120920
  Transmission Date: 20130627
  Serious: Yes (Death)
  Sender: FDA-Public Use
  Company Number: US-UCBSA-065219

PATIENT
  Age: 51 Year
  Sex: Male

DRUGS (10)
  1. CIMZIA [Suspect]
     Indication: CROHN^S DISEASE
     Dates: start: 201104, end: 20120827
  2. CIMZIA [Suspect]
     Indication: CROHN^S DISEASE
     Dosage: 200X2
  3. ALLOPURINOL [Concomitant]
     Dosage: DAILY DOSE: 300 MG
  4. PENTASA [Concomitant]
  5. PRE-NATAL VITAMIN WITH FOLIC ACID [Concomitant]
     Dosage: UNKNOWN
  6. PRE-NATAL VITAMIN WITH FOLIC ACID [Concomitant]
     Dosage: UNKNOWN
  7. NORTRIPTYLINE [Concomitant]
     Dosage: DAILY DOSE: 50 MG
  8. COMPAZINE [Concomitant]
     Dosage: 5 MG PRN
  9. PHENERGAN [Concomitant]
     Dosage: 25 MG PRN
  10. METHOTREXATE [Concomitant]
     Dosage: 10 MG 5 TABLETS ON FRIDAYS

REACTIONS (2)
  - Cardiac arrest [Fatal]
  - Large intestinal stricture [Unknown]
